FAERS Safety Report 8873675 (Version 1)
Quarter: 2012Q4

REPORT INFORMATION
  Report Type: 
  Country: US (occurrence: US)
  Receive Date: 20121030
  Receipt Date: 20121030
  Transmission Date: 20130627
  Serious: Yes (Other)
  Sender: FDA-Public Use
  Company Number: PHHY2012US094065

PATIENT
  Age: 57 Year
  Sex: Male

DRUGS (4)
  1. VERAPAMIL [Suspect]
  2. DABIGATRAN [Interacting]
     Indication: ATRIAL FIBRILLATION
     Dosage: 150 mg, BID
  3. ASPIRIN [Concomitant]
     Indication: ATRIAL FIBRILLATION
     Dosage: 81 mg, QD
  4. FLECAINIDE [Concomitant]

REACTIONS (8)
  - Carpal tunnel syndrome [Recovered/Resolved]
  - Pain in extremity [Recovered/Resolved]
  - Sensory loss [Recovered/Resolved]
  - Swelling [Recovered/Resolved]
  - Haemorrhage [Recovered/Resolved]
  - Ecchymosis [Recovered/Resolved]
  - Haematoma [Recovered/Resolved]
  - Drug level increased [Recovered/Resolved]
